FAERS Safety Report 14227122 (Version 1)
Quarter: 2017Q4

REPORT INFORMATION
  Report Type: Report from Study
  Country: IT (occurrence: IT)
  Receive Date: 20171127
  Receipt Date: 20171127
  Transmission Date: 20180321
  Serious: Yes (Other)
  Sender: FDA-Public Use
  Company Number: IT-JNJFOC-20171026154

PATIENT

DRUGS (7)
  1. SALAZOPYRIN [Concomitant]
     Active Substance: SULFASALAZINE
     Route: 065
  2. AZATHIOPRINE. [Concomitant]
     Active Substance: AZATHIOPRINE
     Route: 065
  3. INFLIXIMAB [Suspect]
     Active Substance: INFLIXIMAB
     Indication: JUVENILE IDIOPATHIC ARTHRITIS
     Dosage: 3-10 MG/KG
     Route: 042
  4. GOLD [Concomitant]
     Active Substance: GOLD
     Route: 065
  5. METHOTREXATE. [Concomitant]
     Active Substance: METHOTREXATE
     Route: 065
  6. CYCLOSPORIN A [Concomitant]
     Active Substance: CYCLOSPORINE
     Route: 065
  7. HYDROXYCHLOROQUINE [Concomitant]
     Active Substance: HYDROXYCHLOROQUINE
     Route: 065

REACTIONS (13)
  - Haematuria [Unknown]
  - Juvenile idiopathic arthritis [Unknown]
  - Psychotic behaviour [Unknown]
  - Anxiety [Unknown]
  - Adverse drug reaction [Unknown]
  - Treatment noncompliance [Unknown]
  - Off label use [Unknown]
  - Drug ineffective for unapproved indication [Unknown]
  - Dermatitis [Unknown]
  - Iridocyclitis [Unknown]
  - Pneumonia cytomegaloviral [Unknown]
  - Infusion related reaction [Unknown]
  - Hypertension [Unknown]
